FAERS Safety Report 9393049 (Version 3)
Quarter: 2013Q3

REPORT INFORMATION
  Report Type: Spontaneous
  Country: US (occurrence: US)
  Receive Date: 20130710
  Receipt Date: 20130919
  Transmission Date: 20140515
  Serious: No
  Sender: FDA-Public Use
  Company Number: US-B.I. PHARMACEUTICALS,INC./RIDGEFIELD-2013-BI-19645BP

PATIENT
  Age: 63 Year
  Sex: Female
  Weight: 82 kg

DRUGS (4)
  1. TRADJENTA [Suspect]
     Indication: DIABETES MELLITUS MANAGEMENT
     Dosage: 5 MG
     Route: 048
     Dates: start: 20130605, end: 20130620
  2. TRADJENTA [Suspect]
     Indication: DIABETES MELLITUS
  3. GLUCOPAHGE [Concomitant]
     Indication: DIABETES MELLITUS
     Dosage: 2000 MG
     Route: 048
     Dates: start: 2003
  4. GLUCOTROL [Concomitant]
     Indication: DIABETES MELLITUS
     Dosage: 20 MG
     Route: 048
     Dates: start: 2003

REACTIONS (5)
  - Skin exfoliation [Recovered/Resolved]
  - Rash [Recovered/Resolved]
  - Pruritus [Recovered/Resolved]
  - Pruritus [Unknown]
  - Rash [Recovered/Resolved]
